FAERS Safety Report 13312031 (Version 1)
Quarter: 2017Q1

REPORT INFORMATION
  Report Type: Spontaneous
  Country: US (occurrence: US)
  Receive Date: 20170309
  Receipt Date: 20170309
  Transmission Date: 20170428
  Serious: No
  Sender: FDA-Public Use
  Company Number: US-JEROME STEVENS PHARMACEUTICALS, INC.-1064035

PATIENT
  Sex: Female

DRUGS (1)
  1. LEVOTHYROXINE SODIUM. [Suspect]
     Active Substance: LEVOTHYROXINE SODIUM
     Route: 048
     Dates: start: 201603, end: 201608

REACTIONS (5)
  - Headache [Recovering/Resolving]
  - Flatulence [Recovering/Resolving]
  - Product substitution issue [None]
  - Blood thyroid stimulating hormone decreased [None]
  - Abdominal distension [Recovering/Resolving]

NARRATIVE: CASE EVENT DATE: 201603
